FAERS Safety Report 6601429-3 (Version None)
Quarter: 2010Q1

REPORT INFORMATION
  Report Type: 
  Country: None (occurrence: None)
  Receive Date: 20100225
  Receipt Date: 20100222
  Transmission Date: 20100710
  Serious: Yes (Life-Threatening, Hospitalization)
  Sender: FDA-Public Use
  Company Number: FR-NOVOPROD-304708

PATIENT
  Age: 73 Year
  Sex: Female

DRUGS (11)
  1. NOVOMIX 50 FLEXPEN [Suspect]
     Indication: TYPE 1 DIABETES MELLITUS
     Dosage: 42 IU, QD
     Route: 058
  2. NOVOMIX 30 [Suspect]
     Indication: TYPE 1 DIABETES MELLITUS
     Dosage: 32 IU, QD
     Route: 058
  3. STABLON                            /00956301/ [Concomitant]
  4. TAHOR [Concomitant]
  5. PREVISCAN                          /00261401/ [Concomitant]
     Dosage: 20 MG, QD TABLET
     Route: 048
  6. POTASSIUM [Concomitant]
     Dosage: CAPSULE
  7. TRIATEC                            /00116401/ [Concomitant]
     Dosage: 5 MG, QD CAPSULE
  8. KREDEX [Concomitant]
  9. LASIX [Concomitant]
     Dosage: 40 MG, QD TABLET
  10. HEMIGOXINE NATIVELLE [Concomitant]
  11. NOCTRAN [Concomitant]
     Dosage: 10 MG, QD

REACTIONS (3)
  - HEMIPARESIS [None]
  - HYPOGLYCAEMIC COMA [None]
  - HYPOTHERMIA [None]
